FAERS Safety Report 18274505 (Version 1)
Quarter: 2020Q3

REPORT INFORMATION
  Report Type: Spontaneous
  Country: US (occurrence: US)
  Receive Date: 20200916
  Receipt Date: 20200916
  Transmission Date: 20201103
  Serious: Yes (Hospitalization)
  Sender: FDA-Public Use
  Company Number: US-MYLANLABS-2020M1079518

PATIENT
  Age: 48 Year
  Sex: Male

DRUGS (5)
  1. BIVALIRUDIN. [Suspect]
     Active Substance: BIVALIRUDIN
     Indication: ANTICOAGULANT THERAPY
     Dosage: 0.15 MILLIGRAM/KILOGRAM, QH
  2. OSELTAMIVIR [Concomitant]
     Active Substance: OSELTAMIVIR
     Indication: PNEUMONIA INFLUENZAL
     Route: 065
  3. BIVALIRUDIN. [Suspect]
     Active Substance: BIVALIRUDIN
     Dosage: 0.54 MILLIGRAM/KILOGRAM, QH(INFUSED INTO THE CIRCUIT PREOXYGENATOR
  4. BIVALIRUDIN. [Suspect]
     Active Substance: BIVALIRUDIN
     Dosage: 0.34 MILLIGRAM/KILOGRAM, QH
  5. BIVALIRUDIN. [Suspect]
     Active Substance: BIVALIRUDIN
     Dosage: 0.54 MILLIGRAM/KILOGRAM, QH(INFUSED VIA CENTRAL LINE)

REACTIONS (1)
  - Drug resistance [Unknown]
